FAERS Safety Report 23152747 (Version 1)
Quarter: 2023Q4

REPORT INFORMATION
  Report Type: Spontaneous
  Country: US (occurrence: US)
  Receive Date: 20231107
  Receipt Date: 20231107
  Transmission Date: 20240109
  Serious: No
  Sender: FDA-Public Use
  Company Number: US-ABBVIE-5483236

PATIENT
  Sex: Female

DRUGS (2)
  1. SKYRIZI [Suspect]
     Active Substance: RISANKIZUMAB-RZAA
     Indication: Product used for unknown indication
     Route: 058
  2. KETOCONAZOLE [Suspect]
     Active Substance: KETOCONAZOLE
     Indication: Intertrigo
     Route: 065

REACTIONS (6)
  - Drug ineffective [Unknown]
  - Liver function test increased [Unknown]
  - Psoriasis [Recovering/Resolving]
  - Rosacea [Unknown]
  - Angular cheilitis [Unknown]
  - Burning sensation [Unknown]
